FAERS Safety Report 24377169 (Version 1)
Quarter: 2024Q3

REPORT INFORMATION
  Report Type: Report from Study
  Country: GB (occurrence: GB)
  Receive Date: 20240930
  Receipt Date: 20240930
  Transmission Date: 20241017
  Serious: Yes (Other)
  Sender: ABBVIE
  Company Number: GB-ABBVIE-5940258

PATIENT
  Sex: Male

DRUGS (2)
  1. CARBIDOPA\LEVODOPA [Suspect]
     Active Substance: CARBIDOPA\LEVODOPA
     Indication: Parkinson^s disease
     Dosage: 20MG/5MG
     Route: 050
  2. CARBIDOPA\LEVODOPA [Suspect]
     Active Substance: CARBIDOPA\LEVODOPA

REACTIONS (18)
  - Cerebral haemorrhage [Unknown]
  - Balance disorder [Unknown]
  - Poor quality sleep [Unknown]
  - Stoma site infection [Recovered/Resolved]
  - Depression [Unknown]
  - Weight decreased [Unknown]
  - Stoma site discharge [Recovered/Resolved]
  - Anxiety [Unknown]
  - Nocturia [Unknown]
  - Freezing phenomenon [Unknown]
  - Dystonia [Unknown]
  - Dyskinesia [Unknown]
  - Depressed mood [Unknown]
  - Gait disturbance [Unknown]
  - Abnormal dreams [Unknown]
  - Fall [Unknown]
  - Middle insomnia [Unknown]
  - Thinking abnormal [Unknown]

NARRATIVE: CASE EVENT DATE: 20240801
